FAERS Safety Report 6203682-7 (Version None)
Quarter: 2009Q2

REPORT INFORMATION
  Report Type: 
  Country: None (occurrence: None)
  Receive Date: 20090526
  Receipt Date: 20090526
  Transmission Date: 20091009
  Serious: Yes (Life-Threatening, Hospitalization, Other)
  Sender: FDA-Public Use
  Company Number: None

PATIENT
  Sex: Male
  Weight: 90.7194 kg

DRUGS (1)
  1. CIPROFLOXACIN [Suspect]
     Indication: URINARY TRACT INFECTION
     Dosage: 1 TABLET 2 X PER DAY PO
     Route: 048
     Dates: start: 20090312, end: 20090320

REACTIONS (5)
  - ARTHROPATHY [None]
  - BACK PAIN [None]
  - MUSCLE SPASMS [None]
  - PULMONARY THROMBOSIS [None]
  - TENDON DISORDER [None]
